FAERS Safety Report 8543026-9 (Version None)
Quarter: 2012Q3

REPORT INFORMATION
  Report Type: 
  Country: None (occurrence: None)
  Receive Date: 20120727
  Receipt Date: 20120717
  Transmission Date: 20120928
  Serious: Yes (Other)
  Sender: FDA-Public Use
  Company Number: JP-VERTEX PHARMACEUTICALS INC.-AE-2012-010735

PATIENT
  Age: 52 Year
  Sex: Female

DRUGS (5)
  1. TELAVIC (TELAPREVIR) [Suspect]
     Indication: HEPATITIS C
     Route: 048
     Dates: start: 20120511
  2. RIBAVIRIN [Concomitant]
     Route: 048
     Dates: start: 20120601
  3. PEGINTERFERON ALFA-2B [Concomitant]
     Route: 058
     Dates: start: 20120601
  4. PEGINTERFERON ALFA-2B [Concomitant]
     Indication: HEPATITIS C
     Route: 058
     Dates: start: 20120511, end: 20120525
  5. RIBAVIRIN [Concomitant]
     Indication: HEPATITIS C
     Route: 048
     Dates: start: 20120511, end: 20120531

REACTIONS (7)
  - INJECTION SITE ERYTHEMA [None]
  - ANAEMIA [None]
  - NEUTROPHIL COUNT DECREASED [None]
  - ERYTHEMA [None]
  - RASH [None]
  - DIARRHOEA [None]
  - PRURITUS [None]
